FAERS Safety Report 23576164 (Version 2)
Quarter: 2025Q1

REPORT INFORMATION
  Report Type: Report from Study
  Country: US (occurrence: US)
  Receive Date: 20240228
  Receipt Date: 20250103
  Transmission Date: 20250408
  Serious: No
  Sender: GENMAB
  Company Number: US-GENMAB-2023-02516

PATIENT
  Age: 22 Year
  Sex: Male

DRUGS (1)
  1. EPKINLY [Suspect]
     Active Substance: EPCORITAMAB-BYSP
     Route: 065
     Dates: start: 20231010

REACTIONS (1)
  - Therapy non-responder [Unknown]
